FAERS Safety Report 4626764-X (Version None)
Quarter: 2005Q2

REPORT INFORMATION
  Report Type: 
  Country: None (occurrence: None)
  Receive Date: 20050405
  Receipt Date: 20050121
  Transmission Date: 20051028
  Serious: Yes (Other)
  Sender: FDA-Public Use
  Company Number: PHEH2005US01175

PATIENT
  Age: 70 Year
  Sex: Female
  Weight: 63 kg

DRUGS (5)
  1. ZOMETA [Suspect]
     Indication: MULTIPLE MYELOMA
     Dosage: 4MG QMO
     Dates: start: 20010402, end: 20050101
  2. CYTOXAN [Concomitant]
     Dosage: 200MG
     Dates: start: 20011206, end: 20040210
  3. PREDNISONE TABLETS USP (NGX) [Concomitant]
     Indication: INFLAMMATION
     Dosage: 60MG
     Dates: start: 20000204, end: 20040210
  4. ADALAT [Concomitant]
  5. COZAAR [Concomitant]

REACTIONS (5)
  - BONE DISORDER [None]
  - BONE FORMATION INCREASED [None]
  - C-REACTIVE PROTEIN INCREASED [None]
  - EAR INFECTION [None]
  - GINGIVAL INFECTION [None]
